FAERS Safety Report 11930114 (Version 1)
Quarter: 2016Q1

REPORT INFORMATION
  Report Type: Spontaneous
  Country: US (occurrence: US)
  Receive Date: 20160120
  Receipt Date: 20160120
  Transmission Date: 20160526
  Serious: Yes (Death)
  Sender: FDA-Public Use
  Company Number: US-APOTEX-2016AP005630

PATIENT
  Age: 56 Year
  Sex: Female

DRUGS (4)
  1. BUTALBITAL COMPOUND [Suspect]
     Active Substance: ASPIRIN\BUTALBITAL\CAFFEINE
     Route: 048
  2. ALPRAZOLAM TABLETS USP [Suspect]
     Active Substance: ALPRAZOLAM
     Route: 048
  3. TRAZODONE HYDROCHLORIDE. [Suspect]
     Active Substance: TRAZODONE HYDROCHLORIDE
     Route: 048
  4. HYDROMORPHONE [Suspect]
     Active Substance: HYDROMORPHONE
     Route: 048

REACTIONS (1)
  - Death [Fatal]
